FAERS Safety Report 22853066 (Version 3)
Quarter: 2023Q4

REPORT INFORMATION
  Report Type: Report from Study
  Country: US (occurrence: US)
  Receive Date: 20230823
  Receipt Date: 20231108
  Transmission Date: 20240110
  Serious: Yes (Hospitalization, Other)
  Sender: FDA-Public Use
  Company Number: US-TAKEDA-2023TUS081475

PATIENT
  Sex: Male
  Weight: 28 kg

DRUGS (2)
  1. MARIBAVIR [Suspect]
     Active Substance: MARIBAVIR
     Indication: Acute lymphocytic leukaemia (in remission)
     Dosage: 400 MILLIGRAM, BID
     Route: 048
  2. MARIBAVIR [Suspect]
     Active Substance: MARIBAVIR
     Dosage: 400 MILLIGRAM, BID
     Route: 048
     Dates: start: 20230829

REACTIONS (5)
  - Vascular device infection [Unknown]
  - Viral load abnormal [Unknown]
  - Pneumonia [Unknown]
  - Pyrexia [Unknown]
  - Off label use [Unknown]
